FAERS Safety Report 12073029 (Version 2)
Quarter: 2016Q1

REPORT INFORMATION
  Report Type: Report from Study
  Country: CO (occurrence: CO)
  Receive Date: 20160212
  Receipt Date: 20160301
  Transmission Date: 20160526
  Serious: Yes (Hospitalization)
  Sender: FDA-Public Use
  Company Number: CO-BAYER-2016-023870

PATIENT
  Age: 70 Year
  Sex: Male

DRUGS (2)
  1. NEXAVAR [Suspect]
     Active Substance: SORAFENIB
     Indication: RENAL CANCER
     Dosage: 800 MG, QD
     Route: 048
     Dates: start: 2010
  2. NEXAVAR [Suspect]
     Active Substance: SORAFENIB
     Indication: RENAL CANCER
     Dosage: 800 MG, QD
     Route: 048

REACTIONS (1)
  - Exposed bone in jaw [Recovering/Resolving]
